FAERS Safety Report 9718761 (Version 1)
Quarter: 2013Q4

REPORT INFORMATION
  Report Type: Not Available
  Country: US (occurrence: US)
  Receive Date: 20131125
  Receipt Date: 20131125
  Transmission Date: 20140711
  Serious: No
  Sender: FDA-Public Use
  Company Number: US-H. LUNDBECK A/S-DKLU1094434

PATIENT
  Sex: Female

DRUGS (3)
  1. ONFI (ORAL SUSPENSION) [Suspect]
     Indication: CONVULSION
     Route: 048
     Dates: start: 20130917, end: 20130925
  2. LAMICTAL [Concomitant]
     Indication: PRODUCT USED FOR UNKNOWN INDICATION
  3. VALPROIC ACID [Concomitant]
     Indication: PRODUCT USED FOR UNKNOWN INDICATION

REACTIONS (3)
  - Eye movement disorder [Unknown]
  - Dysarthria [Unknown]
  - Sedation [Unknown]
